FAERS Safety Report 20942395 (Version 1)
Quarter: 2022Q2

REPORT INFORMATION
  Report Type: Spontaneous
  Country: FR (occurrence: FR)
  Receive Date: 20220610
  Receipt Date: 20220610
  Transmission Date: 20220721
  Serious: Yes (Hospitalization)
  Sender: FDA-Public Use
  Company Number: None

PATIENT
  Age: 88 Year
  Sex: Female
  Weight: 85 kg

DRUGS (6)
  1. OFLOXACIN [Suspect]
     Active Substance: OFLOXACIN
     Indication: Escherichia pyelonephritis
     Route: 048
     Dates: start: 20211211, end: 20211215
  2. XARELTO [Concomitant]
     Active Substance: RIVAROXABAN
     Indication: Atrial fibrillation
     Dosage: THERAPY START DATE : ASKU
     Route: 048
  3. DAFALGAN [Concomitant]
     Active Substance: ACETAMINOPHEN
     Indication: Analgesic intervention supportive therapy
     Dosage: 2 TO 8 FROST/DAY IF NEEDED
     Route: 048
     Dates: start: 20211104
  4. LEVOTHYROXINE [Concomitant]
     Active Substance: LEVOTHYROXINE
     Indication: Hypothyroidism
     Dosage: THERAPY START DATE : ASKU
     Route: 048
  5. ALLOPURINOL [Concomitant]
     Active Substance: ALLOPURINOL
     Indication: Gout
     Dosage: THERAPY END DATE : ASKU
     Route: 048
  6. PAROXETINE HYDROCHLORIDE [Concomitant]
     Active Substance: PAROXETINE HYDROCHLORIDE
     Indication: Agitation
     Dosage: CHLORHYDRATE DE PAROXETINE ANHYDRE
     Route: 048
     Dates: start: 20211115

REACTIONS (1)
  - Dementia [Recovered/Resolved]

NARRATIVE: CASE EVENT DATE: 20211212
